FAERS Safety Report 15487908 (Version 1)
Quarter: 2018Q4

REPORT INFORMATION
  Report Type: Spontaneous
  Country: US (occurrence: US)
  Receive Date: 20181011
  Receipt Date: 20181011
  Transmission Date: 20190205
  Serious: No
  Sender: FDA-Public Use
  Company Number: US-SA-2017SA153182

PATIENT
  Age: 25 Year
  Sex: Female
  Weight: 40.82 kg

DRUGS (33)
  1. FUROSEMIDE. [Concomitant]
     Active Substance: FUROSEMIDE
     Dosage: 10 MG, QD
     Route: 048
     Dates: start: 20180619
  2. DELSYM [Concomitant]
     Active Substance: DEXTROMETHORPHAN
     Dosage: 1 DOSE TWICE A DAY PRN
     Route: 048
     Dates: start: 20170601
  3. LIDOCAINE. [Concomitant]
     Active Substance: LIDOCAINE
     Indication: PREMEDICATION
     Dosage: 4 %,UNK
     Route: 061
     Dates: start: 20180319
  4. LIDOCAINE. [Concomitant]
     Active Substance: LIDOCAINE
     Dosage: 5 ML,Q4H
     Route: 048
     Dates: start: 20171201
  5. BACITRACIN. [Concomitant]
     Active Substance: BACITRACIN
     Dosage: 1 APPLICATION ,BID
     Route: 061
     Dates: start: 20170120
  6. ENALAPRIL [Concomitant]
     Active Substance: ENALAPRIL
     Dosage: DOSE: 1 DOSE, FREQUENCY: AS DIRECTED
     Route: 048
     Dates: start: 20160510
  7. SYSTANE (HYPROMELLOSE 2910 (4000 MPA.S)) [Concomitant]
     Active Substance: HYPROMELLOSE 2910 (4000 MPA.S)
     Dosage: 1 DROP, BOTH EYES, TID
     Route: 065
     Dates: start: 20140206
  8. SINGULAIR [Concomitant]
     Active Substance: MONTELUKAST SODIUM
     Dosage: 2 TABLETS DAILY
     Route: 048
     Dates: start: 20120827
  9. ALDURAZYME [Suspect]
     Active Substance: LARONIDASE
     Indication: MUCOPOLYSACCHARIDOSIS
     Dosage: 23.2 MG, QW
     Route: 041
  10. IBUPROFEN. [Concomitant]
     Active Substance: IBUPROFEN
     Dosage: 15 ML,EVERY 6 HOURS PRN
     Route: 048
     Dates: start: 20170601
  11. ALL OTHER THERAPEUTIC PRODUCTS [Concomitant]
     Active Substance: UNSPECIFIED INGREDIENT
     Dosage: UNK UNK,PRN
     Route: 048
     Dates: start: 20170227
  12. ENALAPRIL [Concomitant]
     Active Substance: ENALAPRIL
     Dosage: 5 MG, QD
     Route: 048
     Dates: start: 20180619
  13. CEFDINIR. [Concomitant]
     Active Substance: CEFDINIR
     Dosage: 5 ML,BID
     Route: 048
     Dates: start: 20171201
  14. MULTIVITAMINS [VITAMINS NOS] [Concomitant]
     Dosage: 1 TABLET DAILY
     Route: 048
     Dates: start: 20160208
  15. HEPARIN [Concomitant]
     Active Substance: HEPARIN SODIUM
     Indication: FLUSHING
     Dosage: 100 IU/ML,AS DIRECTED
     Route: 042
     Dates: start: 20180319
  16. ACETAMINOPHEN. [Concomitant]
     Active Substance: ACETAMINOPHEN
     Dosage: 2 TABLETS PRN
     Route: 048
     Dates: start: 20180619
  17. ACETAMINOPHEN. [Concomitant]
     Active Substance: ACETAMINOPHEN
     Dosage: PRN
     Route: 048
     Dates: start: 20170601
  18. OXYGEN. [Concomitant]
     Active Substance: OXYGEN
     Dosage: 2 L,UNK
     Route: 045
     Dates: start: 20170302
  19. DIPHENHYDRAMINE. [Concomitant]
     Active Substance: DIPHENHYDRAMINE
     Dosage: 1 TABLET AS NEEDED
     Route: 048
     Dates: start: 20170227
  20. EPIPEN [Concomitant]
     Active Substance: EPINEPHRINE
     Indication: ANAPHYLACTIC REACTION
     Dosage: .3 MG,PRN
     Route: 030
     Dates: start: 20170109
  21. XARELTO [Concomitant]
     Active Substance: RIVAROXABAN
     Dosage: 1 TABLET DAILY
     Route: 048
     Dates: start: 20161004
  22. ENALAPRIL [Concomitant]
     Active Substance: ENALAPRIL
     Dosage: 1.5 DF,QD
     Route: 048
     Dates: start: 20171016
  23. FERROUS SULFATE. [Concomitant]
     Active Substance: FERROUS SULFATE
     Dosage: 1 TABLET DAILY
     Route: 048
     Dates: start: 20180223
  24. ALBUTEROL [SALBUTAMOL] [Concomitant]
     Active Substance: ALBUTEROL
     Dosage: 2 PUFFS EVERY 6 HOURSPRN
     Route: 055
     Dates: start: 20170601
  25. HEPARIN [Concomitant]
     Active Substance: HEPARIN SODIUM
     Dosage: 100 IU/ML,UNK
     Route: 042
     Dates: start: 20170109
  26. PREDNISOLONE. [Concomitant]
     Active Substance: PREDNISOLONE
     Dosage: 1 DROP BOTH EYES EVERY MORNING
     Route: 065
     Dates: start: 20140206
  27. NORMAL SALINE [Concomitant]
     Active Substance: SODIUM CHLORIDE
     Indication: MEDICATION DILUTION
     Dosage: .9 %,A DIRECTED
     Route: 042
     Dates: start: 20180319
  28. NORMAL SALINE [Concomitant]
     Active Substance: SODIUM CHLORIDE
     Dosage: .9 %,A DIRECTED
     Route: 042
     Dates: start: 20170109
  29. EPIPEN [Concomitant]
     Active Substance: EPINEPHRINE
     Dosage: .3 MG,PRN
     Route: 030
     Dates: start: 20180319
  30. LIDOCAINE. [Concomitant]
     Active Substance: LIDOCAINE
     Dosage: 4 %,UNK
     Route: 061
     Dates: start: 20170109
  31. VESICARE [Concomitant]
     Active Substance: SOLIFENACIN SUCCINATE
     Dosage: 1 TABLET DAILY
     Route: 048
     Dates: start: 20140206
  32. QVAR [Concomitant]
     Active Substance: BECLOMETHASONE DIPROPIONATE
     Dosage: 2 PUFFS BID
     Route: 055
     Dates: start: 20120306
  33. VICKS NYQUIL [Concomitant]
     Active Substance: ACETAMINOPHEN\DEXTROMETHORPHAN HYDROBROMIDE\DOXYLAMINE SUCCINATE
     Dosage: 2 TSP AT BEDTIME AS NEEDED
     Route: 048
     Dates: start: 20170227

REACTIONS (5)
  - Pain in extremity [Unknown]
  - Pyrexia [Unknown]
  - Pain [Unknown]
  - Swollen tongue [Unknown]
  - Infection [Unknown]

NARRATIVE: CASE EVENT DATE: 20171201
